FAERS Safety Report 17610700 (Version 1)
Quarter: 2020Q2

REPORT INFORMATION
  Report Type: Spontaneous
  Country: CA (occurrence: CA)
  Receive Date: 20200401
  Receipt Date: 20200401
  Transmission Date: 20200713
  Serious: Yes (Other)
  Sender: FDA-Public Use
  Company Number: CA-TEVA-2020-CA-1216782

PATIENT
  Age: 66 Year
  Sex: Male
  Weight: 80 kg

DRUGS (4)
  1. ASA [Concomitant]
     Active Substance: ASPIRIN
     Route: 065
  2. ATORVASTATIN CALCIUM. [Suspect]
     Active Substance: ATORVASTATIN CALCIUM
     Indication: CORONARY ARTERY DISEASE
     Dosage: 80 MILLIGRAM DAILY;
     Route: 048
  3. BRILINTA [Concomitant]
     Active Substance: TICAGRELOR
  4. METOPROLOL. [Concomitant]
     Active Substance: METOPROLOL

REACTIONS (5)
  - Blood alkaline phosphatase abnormal [Not Recovered/Not Resolved]
  - Alanine aminotransferase abnormal [Not Recovered/Not Resolved]
  - Blood bilirubin abnormal [Not Recovered/Not Resolved]
  - Gamma-glutamyltransferase abnormal [Not Recovered/Not Resolved]
  - Drug-induced liver injury [Not Recovered/Not Resolved]
